FAERS Safety Report 8514981-8 (Version None)
Quarter: 2012Q3

REPORT INFORMATION
  Report Type: 
  Country: None (occurrence: None)
  Receive Date: 20120705
  Receipt Date: 20120620
  Transmission Date: 20120928
  Serious: Yes (Death)
  Sender: FDA-Public Use
  Company Number: 2012ST000512

PATIENT
  Age: 74 Year
  Sex: Male

DRUGS (1)
  1. MATULANE [Suspect]
     Indication: LYMPHOMA
     Dosage: 50 MG;QD;PO
     Route: 048
     Dates: start: 20120315

REACTIONS (3)
  - SEPSIS [None]
  - NEOPLASM PROGRESSION [None]
  - LYMPHOMA [None]
